FAERS Safety Report 9168472 (Version 1)
Quarter: 2013Q1

REPORT INFORMATION
  Report Type: Spontaneous
  Country: FR (occurrence: None)
  Receive Date: 20130307
  Receipt Date: 20130307
  Transmission Date: 20140127
  Serious: Yes (Congenital Anomaly)
  Sender: FDA-Public Use
  Company Number: 2013-03329

PATIENT
  Sex: Female

DRUGS (4)
  1. LEVETIRACETAM [Suspect]
     Indication: EPILEPSY
  2. TRILEPTAL (OXCARBAZEPINE) [Suspect]
     Indication: EPILEPSY
  3. PREDNISONE (UNKNOWN) (PREDNISONE) UNK [Concomitant]
  4. HYDROXYCHLOROQUINE (HYDROXYCHLOROQUINE) [Concomitant]

REACTIONS (5)
  - Micrognathia [None]
  - Congenital nose malformation [None]
  - Phalangeal hypoplasia [None]
  - Skeletal dysplasia [None]
  - Maternal drugs affecting foetus [None]
